FAERS Safety Report 5970870-4 (Version None)
Quarter: 2008Q4

REPORT INFORMATION
  Report Type: 
  Country: None (occurrence: None)
  Receive Date: 20081128
  Receipt Date: 20081113
  Transmission Date: 20090506
  Serious: Yes (Other)
  Sender: FDA-Public Use
  Company Number: PHHY2008DE28190

PATIENT
  Sex: Male
  Weight: 81 kg

DRUGS (3)
  1. ZOMETA [Suspect]
     Indication: PROPHYLAXIS
     Dosage: 4 MG EVERY 4 WEEKS
     Route: 042
     Dates: start: 20050621, end: 20060901
  2. TRENANTONE [Concomitant]
     Dosage: 3 CYCLES
     Dates: start: 20060208
  3. CALCIMAGON-D3 [Concomitant]
     Dosage: UNK
     Dates: start: 20050621

REACTIONS (2)
  - OSTEONECROSIS [None]
  - TOOTH EXTRACTION [None]
